FAERS Safety Report 4670825-6 (Version None)
Quarter: 2005Q2

REPORT INFORMATION
  Report Type: 
  Country: None (occurrence: None)
  Receive Date: 20050523
  Receipt Date: 20030929
  Transmission Date: 20051028
  Serious: Yes (Hospitalization, Other)
  Sender: FDA-Public Use
  Company Number: US-MERCK-0310USA00097

PATIENT
  Age: 46 Year
  Sex: Male
  Weight: 105 kg

DRUGS (6)
  1. VIOXX [Suspect]
     Indication: RHEUMATOID ARTHRITIS
     Route: 048
     Dates: start: 20010101
  2. VIOXX [Suspect]
     Route: 048
     Dates: start: 20000929, end: 20020101
  3. VIOXX [Suspect]
     Indication: BACK PAIN
     Route: 048
     Dates: start: 20010101
  4. VIOXX [Suspect]
     Route: 048
     Dates: start: 20000929, end: 20020101
  5. ZOCOR [Concomitant]
     Route: 048
  6. PREVACID [Concomitant]
     Route: 065

REACTIONS (57)
  - ABDOMINAL PAIN [None]
  - ABDOMINAL PAIN LOWER [None]
  - ANHEDONIA [None]
  - ANXIETY [None]
  - ARTHRALGIA [None]
  - BACK PAIN [None]
  - BLOOD CHOLESTEROL INCREASED [None]
  - BRONCHITIS ACUTE [None]
  - BURSITIS [None]
  - CHEST DISCOMFORT [None]
  - CHEST PAIN [None]
  - COLITIS ULCERATIVE [None]
  - CONCUSSION [None]
  - CONSTIPATION [None]
  - CONVULSION [None]
  - COSTOCHONDRITIS [None]
  - DEPRESSION [None]
  - DIARRHOEA [None]
  - DISTURBANCE IN ATTENTION [None]
  - DIZZINESS [None]
  - DRUG INEFFECTIVE [None]
  - DUODENAL ULCER [None]
  - DYSURIA [None]
  - ENTEROCOLITIS HAEMORRHAGIC [None]
  - ERECTILE DYSFUNCTION [None]
  - EYE DISORDER [None]
  - FALL [None]
  - FLATULENCE [None]
  - GASTRIC ULCER [None]
  - GASTRITIS [None]
  - GASTROOESOPHAGEAL REFLUX DISEASE [None]
  - HAEMATOCHEZIA [None]
  - HAEMORRHAGE [None]
  - HAEMORRHOIDS [None]
  - HEAD INJURY [None]
  - HYPERTENSION [None]
  - HYPERTRIGLYCERIDAEMIA [None]
  - HYPOGONADISM [None]
  - KIDNEY INFECTION [None]
  - LOSS OF CONSCIOUSNESS [None]
  - MAJOR DEPRESSION [None]
  - MIGRAINE [None]
  - MULTIPLE DRUG OVERDOSE [None]
  - MUSCLE SPASMS [None]
  - MYOCLONUS [None]
  - NAUSEA [None]
  - OEDEMA PERIPHERAL [None]
  - OESOPHAGEAL DISORDER [None]
  - OVERDOSE [None]
  - PALPITATIONS [None]
  - REFUSAL OF EXAMINATION [None]
  - RENAL DISORDER [None]
  - SUICIDE ATTEMPT [None]
  - SYNCOPE [None]
  - ULCER [None]
  - ULNA FRACTURE [None]
  - VOMITING [None]
